FAERS Safety Report 6515870-0 (Version None)
Quarter: 2009Q4

REPORT INFORMATION
  Report Type: 
  Country: None (occurrence: None)
  Receive Date: 20091223
  Receipt Date: 20091210
  Transmission Date: 20100525
  Serious: Yes (Hospitalization)
  Sender: FDA-Public Use
  Company Number: KR-AMGEN-US381406

PATIENT
  Age: 57 Year
  Sex: Female

DRUGS (6)
  1. ETANERCEPT [Suspect]
     Indication: RHEUMATOID ARTHRITIS
     Route: 058
  2. ACECLOFENAC [Concomitant]
     Route: 065
  3. METHOTREXATE [Concomitant]
     Route: 065
  4. CYCLOSPORINE [Concomitant]
     Route: 065
  5. NAPROXEN [Concomitant]
     Route: 065
  6. PREDNISOLONE [Concomitant]
     Route: 065

REACTIONS (3)
  - ARTHRITIS INFECTIVE [None]
  - DECREASED APPETITE [None]
  - EXTRAPULMONARY TUBERCULOSIS [None]
